FAERS Safety Report 8232539-5 (Version None)
Quarter: 2012Q1

REPORT INFORMATION
  Report Type: 
  Country: None (occurrence: None)
  Receive Date: 20120323
  Receipt Date: 20120316
  Transmission Date: 20120608
  Serious: Yes (Hospitalization, Other)
  Sender: FDA-Public Use
  Company Number: US-B.I. PHARMACEUTICALS,INC./RIDGEFIELD-2012-EU-01528GD

PATIENT
  Age: 69 Year
  Sex: Male
  Weight: 113 kg

DRUGS (1)
  1. DABIGATRAN [Suspect]
     Dosage: 300 MG

REACTIONS (11)
  - CONTUSION [None]
  - VENTRICULAR TACHYCARDIA [None]
  - COAGULOPATHY [None]
  - TACHYARRHYTHMIA [None]
  - NAUSEA [None]
  - ATRIAL TACHYCARDIA [None]
  - DECREASED APPETITE [None]
  - RENAL FAILURE ACUTE [None]
  - HYPERKALAEMIA [None]
  - EPISTAXIS [None]
  - HAEMORRHAGE [None]
